FAERS Safety Report 11185294 (Version 1)
Quarter: 2015Q2

REPORT INFORMATION
  Report Type: Spontaneous
  Country: US (occurrence: US)
  Receive Date: 20150612
  Receipt Date: 20150612
  Transmission Date: 20150821
  Serious: No
  Sender: FDA-Public Use
  Company Number: US-SA-2015SA069389

PATIENT
  Age: 69 Year
  Sex: Female

DRUGS (2)
  1. TOUJEO [Suspect]
     Active Substance: INSULIN GLARGINE
     Dosage: ROUTE: SUCU
     Dates: start: 20150429, end: 20150518
  2. SOLOSTAR U300 [Concomitant]
     Dates: start: 20150429, end: 20150518

REACTIONS (1)
  - Blood glucose increased [Unknown]
